FAERS Safety Report 5729201-7 (Version None)
Quarter: 2008Q2

REPORT INFORMATION
  Report Type: 
  Country: None (occurrence: None)
  Receive Date: 20080506
  Receipt Date: 20080502
  Transmission Date: 20081010
  Serious: Yes (Hospitalization, Other)
  Sender: FDA-Public Use
  Company Number: GB-WYE-G01496908

PATIENT
  Sex: Male

DRUGS (2)
  1. GEMTUZUMAB OZOGAMICIN [Suspect]
     Indication: ACUTE MYELOID LEUKAEMIA
     Dosage: UNKNOWN
     Dates: start: 20080331
  2. DAUNORUBICIN HCL [Suspect]
     Dosage: UNKNOWN
     Dates: start: 20080331

REACTIONS (3)
  - BLADDER DISORDER [None]
  - BLADDER TRANSITIONAL CELL CARCINOMA [None]
  - NODULE [None]
